FAERS Safety Report 6018533-3 (Version None)
Quarter: 2008Q4

REPORT INFORMATION
  Report Type: 
  Country: None (occurrence: None)
  Receive Date: 20081223
  Receipt Date: 20081204
  Transmission Date: 20090506
  Serious: No
  Sender: FDA-Public Use
  Company Number: US-B.I. PHARMACEUTICALS,INC./RIDGEFIELD-2008-BP-18296BP

PATIENT
  Age: 28 Year
  Sex: Female

DRUGS (2)
  1. ZANTAC 75 [Suspect]
     Dates: start: 20081201, end: 20081203
  2. PEPTO-BISMOL [Suspect]
     Indication: INFLUENZA
     Dates: start: 20081201

REACTIONS (1)
  - SWELLING FACE [None]
